FAERS Safety Report 8273674-5 (Version None)
Quarter: 2012Q2

REPORT INFORMATION
  Report Type: 
  Country: None (occurrence: None)
  Receive Date: 20120411
  Receipt Date: 20120307
  Transmission Date: 20120825
  Serious: No
  Sender: FDA-Public Use
  Company Number: US-TEVA-326888USA

PATIENT
  Sex: Male
  Weight: 86.26 kg

DRUGS (7)
  1. DUTASTERIDE [Concomitant]
     Indication: PROSTATIC DISORDER
     Dosage: .5 MILLIGRAM;
     Route: 048
  2. VALSARTAN [Concomitant]
     Indication: HYPERTENSION
     Dosage: 320 MILLIGRAM;
     Route: 048
  3. ACETYLSALICYLIC ACID SRT [Concomitant]
     Indication: ANTICOAGULANT THERAPY
     Route: 048
  4. POLYETHYLENE GLYCOL [Concomitant]
     Indication: CONSTIPATION
     Dosage: 17 GRAM;
     Route: 048
  5. ALISKIREN [Concomitant]
     Indication: HYPERTENSION
     Route: 048
  6. NUVIGIL [Suspect]
     Indication: SLEEP APNOEA SYNDROME
     Dosage: 150 MILLIGRAM;
     Route: 048
     Dates: start: 20120131
  7. ESCITALOPRAM OXALATE [Concomitant]
     Indication: DEPRESSION
     Dosage: 10 MILLIGRAM;
     Route: 048
     Dates: start: 20120131

REACTIONS (6)
  - FEELING ABNORMAL [None]
  - WEIGHT DECREASED [None]
  - EAR CONGESTION [None]
  - VISION BLURRED [None]
  - MUSCLE SPASMS [None]
  - DIZZINESS [None]
